FAERS Safety Report 6983401-7 (Version None)
Quarter: 2010Q3

REPORT INFORMATION
  Report Type: 
  Country: None (occurrence: None)
  Receive Date: 20100914
  Receipt Date: 20100914
  Transmission Date: 20110219
  Serious: Yes (Other)
  Sender: FDA-Public Use
  Company Number: None

PATIENT
  Age: 46 Year
  Sex: Male

DRUGS (1)
  1. OCTREOTIDE ACETATE [Suspect]
     Dosage: 200 MCG Q 4 HOURS PRN SQ
     Route: 058
     Dates: start: 20070801, end: 20100430

REACTIONS (1)
  - LOCAL SWELLING [None]
